FAERS Safety Report 6753585-4 (Version None)
Quarter: 2010Q2

REPORT INFORMATION
  Report Type: 
  Country: None (occurrence: None)
  Receive Date: 20100603
  Receipt Date: 20100529
  Transmission Date: 20101027
  Serious: Yes (Other)
  Sender: FDA-Public Use
  Company Number: US-CEPHALON-2010003006

PATIENT
  Sex: Male
  Weight: 91 kg

DRUGS (7)
  1. GABITRIL [Suspect]
     Indication: INSOMNIA
     Route: 048
     Dates: start: 20040101
  2. ASPIRIN [Concomitant]
     Indication: PROPHYLAXIS
  3. ROZEREM [Concomitant]
     Indication: INSOMNIA
  4. SEROQUEL [Concomitant]
     Indication: BIPOLAR DISORDER
  5. CLONIDINE [Concomitant]
     Indication: HYPERTENSION
  6. LIPITOR [Concomitant]
     Indication: HYPERCHOLESTEROLAEMIA
  7. HYDROCODONE [Concomitant]
     Indication: PAIN

REACTIONS (2)
  - CONFUSIONAL STATE [None]
  - LOSS OF CONSCIOUSNESS [None]
